FAERS Safety Report 7980874-8 (Version None)
Quarter: 2011Q4

REPORT INFORMATION
  Report Type: 
  Country: None (occurrence: None)
  Receive Date: 20111214
  Receipt Date: 20111201
  Transmission Date: 20120403
  Serious: Yes (Other)
  Sender: FDA-Public Use
  Company Number: DE-MYLANLABS-2011S1024664

PATIENT
  Age: 72 Year
  Sex: Female
  Weight: 65 kg

DRUGS (6)
  1. ASPIRIN [Concomitant]
     Indication: CORONARY ARTERY DISEASE
     Dosage: 1
     Route: 048
     Dates: start: 20110929, end: 20111020
  2. METOPROLOL TARTRATE [Concomitant]
     Indication: CORONARY ARTERY DISEASE
     Dosage: 2
     Route: 048
     Dates: start: 20110929, end: 20111020
  3. RAMIPRIL [Concomitant]
     Indication: HYPERTENSION
     Dosage: 1
     Route: 048
     Dates: start: 20110929, end: 20111020
  4. SIMVASTATIN [Suspect]
     Indication: PRODUCT USED FOR UNKNOWN INDICATION
     Dosage: 1
     Route: 048
     Dates: start: 20110929, end: 20111014
  5. BRILIQUE [Interacting]
     Indication: CORONARY ARTERY DISEASE
     Dosage: 2
     Route: 048
     Dates: start: 20110929, end: 20111020
  6. RAMIPRIL + HYDROCHLOROTHIAZIDE [Concomitant]
     Indication: HYPERTENSION
     Dosage: 1
     Route: 048
     Dates: start: 20110929, end: 20111020

REACTIONS (2)
  - HEPATIC FUNCTION ABNORMAL [None]
  - DRUG INTERACTION [None]
